FAERS Safety Report 5913345-0 (Version None)
Quarter: 2008Q4

REPORT INFORMATION
  Report Type: 
  Country: None (occurrence: None)
  Receive Date: 20081009
  Receipt Date: 20080930
  Transmission Date: 20090506
  Serious: Yes (Hospitalization, Other)
  Sender: FDA-Public Use
  Company Number: PHHY2008FR10623

PATIENT
  Sex: Female

DRUGS (11)
  1. TRILEPTAL [Suspect]
     Indication: EPILEPSY
     Dosage: 600 MG, BID
     Route: 048
     Dates: start: 20070301, end: 20080602
  2. TRILEPTAL [Suspect]
     Dosage: 600 MG, BID
     Route: 048
  3. TRILEPTAL [Suspect]
     Dosage: UNK
     Route: 048
     Dates: start: 20080609
  4. DALACINE [Suspect]
     Indication: CHOLECYSTITIS
     Dosage: 600 MG, TID
     Dates: start: 20080510, end: 20080520
  5. SINTROM [Concomitant]
     Route: 048
  6. LASIX [Concomitant]
     Route: 048
  7. ANTIHYPERTENSIVE DRUGS [Concomitant]
     Route: 048
  8. HYTACAND [Concomitant]
  9. KARDEGIC [Concomitant]
  10. CARDENSIEL [Concomitant]
  11. PRAVASTATINE ^SQUIBB^ [Concomitant]

REACTIONS (11)
  - ACANTHOSIS [None]
  - BIOPSY SKIN [None]
  - BLOOD CREATININE INCREASED [None]
  - DERMATITIS EXFOLIATIVE [None]
  - DRUG RASH WITH EOSINOPHILIA AND SYSTEMIC SYMPTOMS [None]
  - EOSINOPHILIA [None]
  - HAEMATURIA [None]
  - NEPHRITIS [None]
  - PROTEINURIA [None]
  - RENAL DISORDER [None]
  - RENAL IMPAIRMENT [None]
